FAERS Safety Report 9650017 (Version 2)
Quarter: 2013Q4

REPORT INFORMATION
  Report Type: Spontaneous
  Country: US (occurrence: US)
  Receive Date: 20131028
  Receipt Date: 20131028
  Transmission Date: 20140711
  Serious: No
  Sender: FDA-Public Use
  Company Number: US-PURDUE-USA-2012-0094406

PATIENT
  Age: 48 Year
  Sex: Male
  Weight: 136.96 kg

DRUGS (2)
  1. OXYCONTIN (NDA 22-272) [Suspect]
     Indication: PAIN
     Dosage: 80 MG, BID
     Route: 048
  2. FLEXERIL                           /00428402/ [Concomitant]
     Indication: MUSCLE SPASMS
     Dosage: 10 MG, DAILY

REACTIONS (5)
  - Arthropathy [Recovered/Resolved]
  - Fall [Recovered/Resolved]
  - Pain [Recovered/Resolved]
  - Hypoaesthesia [Recovered/Resolved]
  - Paraesthesia [Recovered/Resolved]
